FAERS Safety Report 19166971 (Version 1)
Quarter: 2021Q2

REPORT INFORMATION
  Report Type: Spontaneous
  Country: CA (occurrence: CA)
  Receive Date: 20210422
  Receipt Date: 20210422
  Transmission Date: 20210717
  Serious: Yes (Hospitalization)
  Sender: FDA-Public Use
  Company Number: CA-NEBO-PC006749

PATIENT
  Age: 26 Year
  Sex: Female
  Weight: 49 kg

DRUGS (1)
  1. MONOFERRIC [Suspect]
     Active Substance: FERRIC DERISOMALTOSE
     Indication: IRON DEFICIENCY ANAEMIA
     Route: 042

REACTIONS (3)
  - Chest discomfort [Recovered/Resolved]
  - Pallor [Recovered/Resolved]
  - Gastrointestinal disorder [Recovered/Resolved]
